FAERS Safety Report 9203659 (Version 1)
Quarter: 2013Q1

REPORT INFORMATION
  Report Type: Spontaneous
  Country: US (occurrence: None)
  Receive Date: 20130329
  Receipt Date: 20130329
  Transmission Date: 20140127
  Serious: Yes (Hospitalization)
  Sender: FDA-Public Use
  Company Number: None

PATIENT
  Age: 79 Year
  Sex: Male
  Weight: 8307 kg

DRUGS (3)
  1. FENTANYL PATCH [Suspect]
  2. OXYCODONE [Suspect]
  3. MORPHINE [Suspect]

REACTIONS (1)
  - Sedation [None]
